FAERS Safety Report 6940134-0 (Version None)
Quarter: 2010Q3

REPORT INFORMATION
  Report Type: 
  Country: None (occurrence: None)
  Receive Date: 20100820
  Receipt Date: 20100809
  Transmission Date: 20110219
  Serious: Yes (Death, Hospitalization)
  Sender: FDA-Public Use
  Company Number: DSA_43705_2010

PATIENT
  Age: 72 Year
  Sex: Male

DRUGS (1)
  1. ENALAPRIL MALEATE [Suspect]
     Indication: PRODUCT USED FOR UNKNOWN INDICATION
     Dosage: (1 DOSE A DAY ORAL)
     Route: 048
     Dates: start: 20091220

REACTIONS (5)
  - ANGIOEDEMA [None]
  - BRAIN INJURY [None]
  - CARDIAC ARREST [None]
  - OBSTRUCTIVE AIRWAYS DISORDER [None]
  - VENTRICULAR TACHYCARDIA [None]
